FAERS Safety Report 8209898-2 (Version None)
Quarter: 2012Q1

REPORT INFORMATION
  Report Type: 
  Country: None (occurrence: None)
  Receive Date: 20120314
  Receipt Date: 20120227
  Transmission Date: 20120608
  Serious: Yes (Other)
  Sender: FDA-Public Use
  Company Number: GB-ROCHE-GNE289354

PATIENT
  Sex: Female

DRUGS (2)
  1. RANIBIZUMAB [Suspect]
     Dosage: 0.5 MG/0.5ML
     Route: 050
     Dates: start: 20090812
  2. RANIBIZUMAB [Suspect]
     Indication: AGE-RELATED MACULAR DEGENERATION
     Dosage: 0.5 MG/0.05ML
     Route: 050
     Dates: start: 20090710

REACTIONS (2)
  - ANGLE CLOSURE GLAUCOMA [None]
  - OPEN ANGLE GLAUCOMA [None]
